FAERS Safety Report 15335770 (Version 1)
Quarter: 2018Q3

REPORT INFORMATION
  Report Type: Spontaneous
  Country: PT (occurrence: PT)
  Receive Date: 20180830
  Receipt Date: 20180830
  Transmission Date: 20181010
  Serious: Yes (Other)
  Sender: FDA-Public Use
  Company Number: PT-ELI_LILLY_AND_COMPANY-PT201808012849

PATIENT
  Age: 49 Year
  Sex: Female
  Weight: 65 kg

DRUGS (4)
  1. FLUOROURACIL. [Concomitant]
     Active Substance: FLUOROURACIL
     Indication: ADENOCARCINOMA OF COLON
     Dosage: UNK UNK, UNKNOWN
  2. FOLINIC ACID [Concomitant]
     Active Substance: LEUCOVORIN
     Indication: ADENOCARCINOMA OF COLON
     Dosage: UNK UNK, UNKNOWN
  3. IRINOTECAN [Concomitant]
     Active Substance: IRINOTECAN
     Indication: ADENOCARCINOMA OF COLON
     Dosage: UNK UNK, UNKNOWN
  4. ERBITUX [Suspect]
     Active Substance: CETUXIMAB
     Indication: ADENOCARCINOMA OF COLON
     Dosage: 1 DF, UNKNOWN
     Route: 042
     Dates: start: 20180629

REACTIONS (8)
  - Pain [Recovering/Resolving]
  - Paraesthesia [Recovering/Resolving]
  - Burning sensation [Recovering/Resolving]
  - Skin reaction [Recovering/Resolving]
  - Dizziness [Recovering/Resolving]
  - Pruritus [Recovering/Resolving]
  - Asthenia [Recovering/Resolving]
  - Nausea [Recovering/Resolving]

NARRATIVE: CASE EVENT DATE: 20180702
